FAERS Safety Report 12350712 (Version 1)
Quarter: 2016Q2

REPORT INFORMATION
  Report Type: Spontaneous
  Country: US (occurrence: None)
  Receive Date: 20160509
  Receipt Date: 20160509
  Transmission Date: 20160815
  Serious: No
  Sender: FDA-Public Use
  Company Number: None

PATIENT
  Age: 70 Year
  Sex: Female

DRUGS (1)
  1. IBRANCE [Suspect]
     Active Substance: PALBOCICLIB
     Indication: BREAST CANCER
     Dosage: 125MG X 21 DAYS QD ORAL
     Route: 048
     Dates: start: 201604

REACTIONS (7)
  - Pain in extremity [None]
  - Nausea [None]
  - Neuropathy peripheral [None]
  - Abdominal discomfort [None]
  - Headache [None]
  - Vomiting [None]
  - Tremor [None]

NARRATIVE: CASE EVENT DATE: 201605
